FAERS Safety Report 7735682-X (Version None)
Quarter: 2011Q3

REPORT INFORMATION
  Report Type: 
  Country: None (occurrence: None)
  Receive Date: 20110907
  Receipt Date: 20110824
  Transmission Date: 20111222
  Serious: Yes (Other)
  Sender: FDA-Public Use
  Company Number: GB-MYLANLABS-2011S1018042

PATIENT
  Age: 59 Year
  Sex: Male

DRUGS (3)
  1. TACROLIMUS [Suspect]
     Indication: IMMUNOSUPPRESSION
     Route: 065
  2. RITUXIMAB [Suspect]
     Indication: IMMUNOSUPPRESSION
     Route: 065
     Dates: start: 20060101
  3. DACLIZUMAB [Suspect]
     Indication: IMMUNOSUPPRESSION
     Route: 065
     Dates: start: 20060101

REACTIONS (2)
  - ANGIOSARCOMA [None]
  - ARM AMPUTATION [None]
